FAERS Safety Report 16217065 (Version 1)
Quarter: 2019Q2

REPORT INFORMATION
  Report Type: Spontaneous
  Country: NL (occurrence: NL)
  Receive Date: 20190419
  Receipt Date: 20190419
  Transmission Date: 20190711
  Serious: Yes (Death)
  Sender: FDA-Public Use
  Company Number: NL-TEVA-2019-NL-1039303

PATIENT
  Sex: Female

DRUGS (1)
  1. SILDENAFIL 20 MG [Suspect]
     Active Substance: SILDENAFIL
     Indication: PULMONARY ARTERIAL HYPERTENSION
     Dosage: CURRENT PRESCRIPTION PERIOD: 2019-JAN-29 TO 2019-APR-23
     Route: 048

REACTIONS (2)
  - Adverse event [Unknown]
  - Death [Fatal]
